FAERS Safety Report 18928309 (Version 1)
Quarter: 2021Q1

REPORT INFORMATION
  Report Type: Spontaneous
  Country: US (occurrence: US)
  Receive Date: 20210223
  Receipt Date: 20210223
  Transmission Date: 20210420
  Serious: No
  Sender: FDA-Public Use
  Company Number: US-BAYER-2021-078913

PATIENT
  Sex: Female

DRUGS (2)
  1. PROBIOTICS NOS [Concomitant]
     Active Substance: PROBIOTICS NOS
  2. MIRALAX [Suspect]
     Active Substance: POLYETHYLENE GLYCOL 3350
     Indication: COLONOSCOPY
     Dosage: UNK
     Route: 048
     Dates: start: 2019

REACTIONS (4)
  - Expired product administered [None]
  - Off label use [Unknown]
  - Product use in unapproved indication [Unknown]
  - Product packaging difficult to open [None]

NARRATIVE: CASE EVENT DATE: 2019
